FAERS Safety Report 7682283 (Version 5)
Quarter: 2013Q3

REPORT INFORMATION
  Report Type: Spontaneous
  Country: US (occurrence: US)
  Receive Date: 20101124
  Receipt Date: 20130930
  Transmission Date: 20140515
  Serious: Yes (Other)
  Sender: FDA-Public Use
  Company Number: US-ROCHE-723025

PATIENT
  Age: 16 Year
  Sex: Male
  Weight: 68 kg

DRUGS (3)
  1. ACCUTANE [Suspect]
     Indication: ACNE
     Route: 048
     Dates: start: 199908, end: 200003
  2. ACCUTANE [Suspect]
     Route: 048
     Dates: start: 20000410, end: 200006
  3. ACCUTANE [Suspect]
     Route: 048
     Dates: start: 200201, end: 200203

REACTIONS (9)
  - Crohn^s disease [Unknown]
  - Gastrointestinal injury [Unknown]
  - Inflammatory bowel disease [Unknown]
  - Suicide attempt [Unknown]
  - Suicidal ideation [Unknown]
  - Depression [Unknown]
  - Proctitis [Unknown]
  - Blood alkaline phosphatase increased [Recovered/Resolved]
  - Lip dry [Unknown]
